FAERS Safety Report 10207870 (Version 1)
Quarter: 2014Q2

REPORT INFORMATION
  Report Type: Spontaneous
  Country: US (occurrence: US)
  Receive Date: 20140530
  Receipt Date: 20140530
  Transmission Date: 20141212
  Serious: No
  Sender: FDA-Public Use
  Company Number: US-GLAXOSMITHKLINE-A1063414A

PATIENT
  Age: 58 Year
  Sex: Male

DRUGS (8)
  1. VENTOLIN HFA [Suspect]
     Indication: CHRONIC OBSTRUCTIVE PULMONARY DISEASE
     Dates: start: 20140204
  2. TUDORZA PRESSAIR [Suspect]
     Indication: CHRONIC OBSTRUCTIVE PULMONARY DISEASE
     Dosage: 400MCG TWICE PER DAY
     Route: 055
     Dates: start: 20140204
  3. SINGULAIR [Suspect]
     Indication: DERMATITIS ALLERGIC
  4. ADVAIR [Concomitant]
     Dates: end: 20140203
  5. COMBIVENT [Concomitant]
     Dates: end: 20140203
  6. NEXIUM [Concomitant]
  7. LISINOPRIL [Concomitant]
  8. HYDROCHLOROTHIAZIDE [Concomitant]

REACTIONS (2)
  - Rash [Not Recovered/Not Resolved]
  - Pruritus [Not Recovered/Not Resolved]
